FAERS Safety Report 11614768 (Version 1)
Quarter: 2015Q4

REPORT INFORMATION
  Report Type: Spontaneous
  Country: US (occurrence: US)
  Receive Date: 20151009
  Receipt Date: 20151009
  Transmission Date: 20160304
  Serious: No
  Sender: FDA-Public Use
  Company Number: US-PAR PHARMACEUTICAL, INC-2014SCPR009199

PATIENT

DRUGS (1)
  1. CHOLESTYRAMINE. [Suspect]
     Active Substance: CHOLESTYRAMINE
     Indication: DIARRHOEA
     Dosage: 3-4 PACKETS DAILY
     Route: 065
     Dates: end: 20140520

REACTIONS (3)
  - Drug ineffective for unapproved indication [Recovered/Resolved]
  - Nausea [Recovered/Resolved]
  - Product quality issue [Unknown]
